FAERS Safety Report 5762673-0 (Version None)
Quarter: 2008Q2

REPORT INFORMATION
  Report Type: 
  Country: None (occurrence: None)
  Receive Date: 20080609
  Receipt Date: 20080529
  Transmission Date: 20081010
  Serious: Yes (Other)
  Sender: FDA-Public Use
  Company Number: CA-JNJFOC-20080204029

PATIENT
  Sex: Male
  Weight: 63 kg

DRUGS (4)
  1. REMICADE [Suspect]
     Indication: CROHN'S DISEASE
     Dosage: FOR 5 YEARS
     Route: 042
  2. IMURAN [Concomitant]
     Dosage: FOR 6 YEARS
  3. RABEPRAZOLE SODIUM [Concomitant]
     Dosage: FOR 6 YEARS
  4. VITAMIN B-12 [Concomitant]

REACTIONS (1)
  - PULMONARY TUBERCULOSIS [None]
